FAERS Safety Report 15386595 (Version 1)
Quarter: 2018Q3

REPORT INFORMATION
  Report Type: Spontaneous
  Country: US (occurrence: US)
  Receive Date: 20180914
  Receipt Date: 20180914
  Transmission Date: 20181010
  Serious: No
  Sender: FDA-Public Use
  Company Number: US-UGNX-US-UGNX-18-00083

PATIENT
  Sex: Male
  Weight: 17.2 kg

DRUGS (1)
  1. MEPSEVII [Suspect]
     Active Substance: VESTRONIDASE ALFA-VJBK
     Indication: MUCOPOLYSACCHARIDOSIS VII
     Route: 042
     Dates: start: 20180404

REACTIONS (1)
  - Pharyngitis streptococcal [Unknown]
